FAERS Safety Report 12996259 (Version 1)
Quarter: 2016Q4

REPORT INFORMATION
  Report Type: Spontaneous
  Country: US (occurrence: US)
  Receive Date: 20161203
  Receipt Date: 20161203
  Transmission Date: 20170207
  Serious: Yes (Life-Threatening, Hospitalization, Other)
  Sender: FDA-Public Use
  Company Number: US-AXELLIA-001007

PATIENT
  Age: 26 Year
  Sex: Male

DRUGS (1)
  1. VANCOMYCIN [Suspect]
     Active Substance: VANCOMYCIN
     Indication: OSTEOMYELITIS

REACTIONS (4)
  - Hepatic failure [Recovered/Resolved]
  - Acute kidney injury [Unknown]
  - Drug reaction with eosinophilia and systemic symptoms [Unknown]
  - Ejection fraction decreased [Unknown]
